FAERS Safety Report 22055721 (Version 1)
Quarter: 2023Q1

REPORT INFORMATION
  Report Type: Spontaneous
  Country: CA (occurrence: CA)
  Receive Date: 20230302
  Receipt Date: 20230302
  Transmission Date: 20230418
  Serious: Yes (Death, Other)
  Sender: FDA-Public Use
  Company Number: CA-FreseniusKabi-FK202302550

PATIENT
  Age: 60 Year
  Sex: Male

DRUGS (5)
  1. HEPARIN [Suspect]
     Active Substance: HEPARIN SODIUM
     Indication: Jugular vein thrombosis
  2. DENOSUMAB [Concomitant]
     Active Substance: DENOSUMAB
     Indication: Hyperparathyroidism primary
  3. CALCITONIN [Concomitant]
     Active Substance: CALCITONIN
     Indication: Hyperparathyroidism primary
  4. CINACALCET [Concomitant]
     Active Substance: CINACALCET
     Indication: Hypercalcaemia
  5. PAMIDRONATE [Concomitant]
     Active Substance: PAMIDRONATE DISODIUM
     Indication: Hypercalcaemia

REACTIONS (1)
  - Death [Fatal]
